FAERS Safety Report 4494446-3 (Version None)
Quarter: 2004Q4

REPORT INFORMATION
  Report Type: 
  Country: None (occurrence: None)
  Receive Date: 20041102
  Receipt Date: 20041018
  Transmission Date: 20050328
  Serious: Yes (Hospitalization)
  Sender: FDA-Public Use
  Company Number: FR_030302172

PATIENT
  Age: 40 Year
  Sex: Female

DRUGS (1)
  1. PROZAC [Suspect]
     Dates: start: 19990815, end: 20030315

REACTIONS (1)
  - BREAST ABSCESS [None]
